FAERS Safety Report 12545029 (Version 1)
Quarter: 2016Q3

REPORT INFORMATION
  Report Type: Spontaneous
  Country: US (occurrence: US)
  Receive Date: 20160711
  Receipt Date: 20160711
  Transmission Date: 20161109
  Serious: Yes (Hospitalization, Other)
  Sender: FDA-Public Use
  Company Number: US-SUNOVION-2016SUN001669

PATIENT
  Sex: Male
  Weight: 64.4 kg

DRUGS (1)
  1. LATUDA [Suspect]
     Active Substance: LURASIDONE HYDROCHLORIDE
     Indication: BIPOLAR DISORDER
     Dosage: 40 MG, QD
     Route: 048
     Dates: start: 20160225, end: 20160616

REACTIONS (5)
  - Thirst [Unknown]
  - Weight decreased [Unknown]
  - Blood glucose increased [Recovering/Resolving]
  - Pollakiuria [Unknown]
  - Malaise [Unknown]

NARRATIVE: CASE EVENT DATE: 2016
